FAERS Safety Report 20302786 (Version 1)
Quarter: 2022Q1

REPORT INFORMATION
  Report Type: Spontaneous
  Country: FR (occurrence: FR)
  Receive Date: 20220106
  Receipt Date: 20220106
  Transmission Date: 20220424
  Serious: Yes (Other)
  Sender: FDA-Public Use
  Company Number: FR-AFSSAPS-DJ20212852

PATIENT
  Age: 66 Year
  Sex: Male
  Weight: 59 kg

DRUGS (3)
  1. LEVOFLOXACIN [Suspect]
     Active Substance: LEVOFLOXACIN
     Indication: Glomerulonephritis
     Dosage: UNK (500MG ON 02/18/2021 THEN 250 MG ON 02/19, 02/21, 02/24, 06/02 AND 02/28)
     Route: 048
     Dates: start: 20210218, end: 20210228
  2. AZACTAM [Suspect]
     Active Substance: AZTREONAM
     Indication: Glomerulonephritis
     Dosage: 2 GRAM, ONCE A DAY
     Route: 042
     Dates: start: 20210218, end: 20210302
  3. DOXYCYCLINE [Suspect]
     Active Substance: DOXYCYCLINE
     Indication: Glomerulonephritis
     Dosage: 200 MILLIGRAM, ONCE A DAY (100MG TWICE A DAY REDUCED TO 100MG PER DAY FROM 02/24/2021)
     Route: 048
     Dates: start: 20210219, end: 20210302

REACTIONS (2)
  - Confusional state [Recovering/Resolving]
  - Wrong strength [Recovered/Resolved]

NARRATIVE: CASE EVENT DATE: 20210218
